FAERS Safety Report 5838258-4 (Version None)
Quarter: 2008Q3

REPORT INFORMATION
  Report Type: 
  Country: None (occurrence: None)
  Receive Date: 20080808
  Receipt Date: 20080730
  Transmission Date: 20090109
  Serious: Yes (Hospitalization)
  Sender: FDA-Public Use
  Company Number: FR-AVENTIS-200812853FR

PATIENT
  Age: 70 Year
  Sex: Male

DRUGS (11)
  1. URBANYL [Suspect]
     Indication: EPILEPSY
     Route: 048
     Dates: start: 20080104, end: 20080121
  2. LOVENOX [Suspect]
     Route: 058
     Dates: start: 20080104, end: 20080128
  3. DEPAKENE [Suspect]
     Indication: EPILEPSY
     Route: 048
     Dates: start: 20080104, end: 20080129
  4. LOXEN [Suspect]
     Route: 048
     Dates: start: 20080105, end: 20080122
  5. OFLOXACINE [Suspect]
     Route: 048
     Dates: start: 20080110, end: 20080129
  6. TRIFLUCAN [Suspect]
     Indication: DRUG USE FOR UNKNOWN INDICATION
     Route: 048
     Dates: start: 20080116, end: 20080128
  7. TRIATEC                            /00885601/ [Concomitant]
     Indication: DRUG USE FOR UNKNOWN INDICATION
     Route: 048
  8. INSULATARD                         /00646002/ [Concomitant]
     Indication: DRUG USE FOR UNKNOWN INDICATION
     Route: 058
  9. ZANIDIP [Concomitant]
     Indication: DRUG USE FOR UNKNOWN INDICATION
     Route: 048
  10. TORENTAL [Concomitant]
     Indication: DRUG USE FOR UNKNOWN INDICATION
  11. DIFFU K [Concomitant]
     Indication: DRUG USE FOR UNKNOWN INDICATION
     Route: 048

REACTIONS (4)
  - ANAEMIA [None]
  - NEUTROPENIA [None]
  - PANCYTOPENIA [None]
  - THROMBOCYTOPENIA [None]
